FAERS Safety Report 8758197 (Version 1)
Quarter: 2012Q4

REPORT INFORMATION
  Report Type: 
  Country: US (occurrence: US)
  Receive Date: 20120828
  Receipt Date: 20120828
  Transmission Date: 20130627
  Serious: Yes (Other)
  Sender: FDA-Public Use
  Company Number: US-ASTRAZENECA-2012SE58014

PATIENT
  Sex: Female

DRUGS (2)
  1. SYMBICORT [Suspect]
     Indication: HIATUS HERNIA
     Dosage: UNK 2 PUFFS, TWO TIMES A DAY
     Route: 055
     Dates: start: 201202
  2. SYMBICORT [Suspect]
     Indication: HIATUS HERNIA
     Dosage: 3 PUFFS ON ONE OCCASION
     Route: 055

REACTIONS (3)
  - Oxygen saturation decreased [Unknown]
  - Dyspnoea exertional [Unknown]
  - Off label use [Unknown]
